FAERS Safety Report 13726068 (Version 1)
Quarter: 2017Q3

REPORT INFORMATION
  Report Type: Spontaneous
  Country: US (occurrence: US)
  Receive Date: 20170707
  Receipt Date: 20170707
  Transmission Date: 20171127
  Serious: Yes (Disabling)
  Sender: FDA-Public Use
  Company Number: None

PATIENT
  Age: 55 Year
  Sex: Female
  Weight: 150.3 kg

DRUGS (21)
  1. ALBUTEROL. [Concomitant]
     Active Substance: ALBUTEROL
  2. DESICCATED THYROID [Concomitant]
  3. CALCIUM-MAGNESIUM-ZINC [Concomitant]
  4. HYDROMORPHONE [Concomitant]
     Active Substance: HYDROMORPHONE
  5. DILTIAZEM. [Concomitant]
     Active Substance: DILTIAZEM
  6. HYDROCORTISONE. [Concomitant]
     Active Substance: HYDROCORTISONE
  7. TURMERIC [Concomitant]
     Active Substance: HERBALS\TURMERIC
  8. SITAGLIPTIN [Concomitant]
     Active Substance: SITAGLIPTIN
  9. PROPRANOLOL [Concomitant]
     Active Substance: PROPRANOLOL HYDROCHLORIDE
  10. REGLAN [Concomitant]
     Active Substance: METOCLOPRAMIDE HYDROCHLORIDE
  11. ACYCLOVIR. [Concomitant]
     Active Substance: ACYCLOVIR
  12. METOPROLOL SUCCINATE. [Concomitant]
     Active Substance: METOPROLOL SUCCINATE
  13. GLIPIZIDE. [Concomitant]
     Active Substance: GLIPIZIDE
  14. ATROVENT [Concomitant]
     Active Substance: IPRATROPIUM BROMIDE
  15. BENYYL [Concomitant]
  16. THYROID [Suspect]
     Active Substance: LEVOTHYROXINE\LIOTHYRONINE
     Indication: THYROID HORMONE REPLACEMENT THERAPY
     Dosage: ?          OTHER STRENGTH:GR;QUANTITY:120 TABLET(S);?
     Route: 048
     Dates: start: 20170610
  17. INCRUSE ELLIPTA [Concomitant]
     Active Substance: UMECLIDINIUM BROMIDE
  18. ATORVASTATIN [Concomitant]
     Active Substance: ATORVASTATIN
  19. ZITHROMAX [Concomitant]
     Active Substance: AZITHROMYCIN DIHYDRATE
  20. DHEA [Concomitant]
     Active Substance: PRASTERONE
  21. MILK THISTLE [Concomitant]
     Active Substance: MILK THISTLE

REACTIONS (2)
  - Blood thyroid stimulating hormone increased [None]
  - Product quality issue [None]

NARRATIVE: CASE EVENT DATE: 20170705
